FAERS Safety Report 6873563-4 (Version None)
Quarter: 2010Q3

REPORT INFORMATION
  Report Type: 
  Country: None (occurrence: None)
  Receive Date: 20100723
  Receipt Date: 20090205
  Transmission Date: 20110219
  Serious: Yes (Other)
  Sender: FDA-Public Use
  Company Number: US-PFIZER INC-2009167000

PATIENT
  Age: 41 Year
  Sex: Male

DRUGS (2)
  1. CHANTIX [Suspect]
  2. MOTRIN [Concomitant]
     Dosage: UNK

REACTIONS (3)
  - ABNORMAL BEHAVIOUR [None]
  - MENTAL DISORDER [None]
  - SUICIDAL IDEATION [None]
